FAERS Safety Report 5458480-9 (Version None)
Quarter: 2007Q3

REPORT INFORMATION
  Report Type: 
  Country: None (occurrence: None)
  Receive Date: 20070919
  Receipt Date: 20070329
  Transmission Date: 20080115
  Serious: No
  Sender: FDA-Public Use
  Company Number: US-ASTRAZENECA-2007UW06423

PATIENT
  Age: 50 Year
  Sex: Male
  Weight: 113.4 kg

DRUGS (11)
  1. SEROQUEL [Suspect]
     Indication: BIPOLAR DISORDER
     Route: 048
  2. SEROQUEL [Suspect]
     Indication: MANIA
     Route: 048
  3. SEROQUEL [Suspect]
     Route: 048
  4. SEROQUEL [Suspect]
     Route: 048
  5. SEROQUEL [Suspect]
     Route: 048
  6. SEROQUEL [Suspect]
     Route: 048
  7. NEURONTIN [Concomitant]
     Indication: BACK PAIN
  8. RISPERIDONE [Concomitant]
  9. LEXAPRO [Concomitant]
  10. CELEBREX [Concomitant]
  11. FLEXERIL [Concomitant]

REACTIONS (3)
  - IMPULSE-CONTROL DISORDER [None]
  - PALPITATIONS [None]
  - PANIC ATTACK [None]
